FAERS Safety Report 4830764-4 (Version None)
Quarter: 2005Q4

REPORT INFORMATION
  Report Type: 
  Country: None (occurrence: None)
  Receive Date: 20051117
  Receipt Date: 20050930
  Transmission Date: 20060501
  Serious: Yes (Death)
  Sender: FDA-Public Use
  Company Number: US-MERCK-0510USA01963

PATIENT
  Age: 70 Year
  Sex: Male
  Weight: 70 kg

DRUGS (13)
  1. VIOXX [Suspect]
     Indication: ARTHRITIS
     Route: 048
     Dates: start: 20000516, end: 20031224
  2. AMIODARONE [Concomitant]
     Route: 065
  3. ATENOLOL [Concomitant]
     Route: 065
  4. ATROVENT [Concomitant]
     Route: 065
  5. COUMADIN [Concomitant]
     Route: 065
  6. ENALAPRIL MALEATE [Concomitant]
     Route: 065
  7. GLUCOPHAGE [Concomitant]
     Route: 065
  8. ISOSORBIDE MONONITRATE [Concomitant]
     Route: 065
  9. LAMISIL [Concomitant]
     Route: 065
  10. METOPROLOL TARTRATE [Concomitant]
     Route: 065
  11. NITROGLYCERIN [Concomitant]
     Route: 065
  12. TRAZODONE HYDROCHLORIDE [Concomitant]
     Route: 065
  13. ZOCOR [Concomitant]
     Route: 048

REACTIONS (1)
  - MYOCARDIAL INFARCTION [None]
